FAERS Safety Report 5097334-7 (Version None)
Quarter: 2006Q3

REPORT INFORMATION
  Report Type: 
  Country: None (occurrence: None)
  Receive Date: 20060906
  Receipt Date: 20060831
  Transmission Date: 20061208
  Serious: Yes (Other)
  Sender: FDA-Public Use
  Company Number: RU-GLAXOSMITHKLINE-B0437004A

PATIENT
  Age: 22 Year
  Sex: Female
  Weight: 55 kg

DRUGS (5)
  1. LAMICTAL [Suspect]
     Indication: EPILEPSY
     Route: 065
     Dates: start: 20060704, end: 20060822
  2. DEPAKENE [Concomitant]
     Indication: EPILEPSY
  3. HEXAMIDINE [Concomitant]
     Indication: EPILEPSY
  4. CARBAMAZEPINE [Concomitant]
     Indication: EPILEPSY
     Route: 065
  5. UNKNOWN MEDICATION [Concomitant]

REACTIONS (2)
  - CONVULSION [None]
  - GENERAL PHYSICAL HEALTH DETERIORATION [None]
